FAERS Safety Report 7296768-X (Version None)
Quarter: 2011Q1

REPORT INFORMATION
  Report Type: 
  Country: None (occurrence: None)
  Receive Date: 20110216
  Receipt Date: 20110202
  Transmission Date: 20110831
  Serious: Yes (Hospitalization)
  Sender: FDA-Public Use
  Company Number: B0664124A

PATIENT
  Sex: Male

DRUGS (3)
  1. ROPINIROLE HYDROCHLORIDE [Suspect]
     Indication: PARKINSON'S DISEASE
     Route: 048
     Dates: start: 20100106, end: 20100706
  2. MENEST [Suspect]
     Indication: PARKINSON'S DISEASE
     Dosage: 1200MG PER DAY
     Route: 048
     Dates: start: 20090918
  3. SELEGILINE HCL [Suspect]
     Indication: PARKINSON'S DISEASE
     Dosage: 10MG PER DAY
     Route: 048
     Dates: start: 20090918

REACTIONS (4)
  - ORTHOSTATIC HYPOTENSION [None]
  - LOSS OF CONSCIOUSNESS [None]
  - SYNCOPE [None]
  - DIZZINESS [None]
